FAERS Safety Report 8191013-5 (Version None)
Quarter: 2012Q1

REPORT INFORMATION
  Report Type: 
  Country: None (occurrence: None)
  Receive Date: 20120307
  Receipt Date: 20100423
  Transmission Date: 20120608
  Serious: No
  Sender: FDA-Public Use
  Company Number: US-B.I. PHARMACEUTICALS,INC./RIDGEFIELD-2010-BP-04714BP

PATIENT
  Sex: Male

DRUGS (8)
  1. AVODART [Concomitant]
     Indication: PROSTATOMEGALY
  2. AVODART [Concomitant]
     Indication: POLLAKIURIA
     Dates: start: 20100422
  3. FLOMAX [Suspect]
     Indication: BENIGN PROSTATIC HYPERPLASIA
  4. ANDROGEL [Concomitant]
     Indication: HORMONE REPLACEMENT THERAPY
  5. AVODART [Concomitant]
     Indication: BENIGN PROSTATIC HYPERPLASIA
  6. FLOMAX [Suspect]
     Indication: POLLAKIURIA
     Dosage: 0.8 MG
     Route: 048
     Dates: start: 20100404
  7. FLOMAX [Suspect]
     Indication: PROSTATOMEGALY
  8. LOTREL [Concomitant]
     Indication: HYPERTENSION

REACTIONS (2)
  - POLLAKIURIA [None]
  - NOCTURIA [None]
